FAERS Safety Report 24910182 (Version 1)
Quarter: 2025Q1

REPORT INFORMATION
  Report Type: Spontaneous
  Country: FR (occurrence: FR)
  Receive Date: 20250131
  Receipt Date: 20250131
  Transmission Date: 20250408
  Serious: Yes (Death, Hospitalization)
  Sender: BAUSCH AND LOMB
  Company Number: FR-BAUSCH-BL-2025-001194

PATIENT
  Age: 84 Year
  Sex: Male
  Weight: 75 kg

DRUGS (1)
  1. ZYCLARA [Suspect]
     Active Substance: IMIQUIMOD
     Indication: Hyperkeratosis
     Dosage: 1 DOSAGE FORM, QD
     Route: 003
     Dates: start: 20231002, end: 20231011

REACTIONS (2)
  - Granulomatosis with polyangiitis [Fatal]
  - Scab [Recovered/Resolved]

NARRATIVE: CASE EVENT DATE: 20231001
